FAERS Safety Report 7334855-8 (Version None)
Quarter: 2011Q1

REPORT INFORMATION
  Report Type: 
  Country: None (occurrence: None)
  Receive Date: 20110307
  Receipt Date: 20110228
  Transmission Date: 20110831
  Serious: Yes (Other)
  Sender: FDA-Public Use
  Company Number: DE-PFIZER INC-2011043821

PATIENT
  Age: 26 Year
  Sex: Male

DRUGS (2)
  1. LYRICA [Suspect]
     Indication: GENERALISED ANXIETY DISORDER
     Dosage: 25 MG, UNK
     Dates: start: 20110225, end: 20110226
  2. LYRICA [Suspect]
     Dosage: 75 MG, UNK
     Dates: start: 20110227

REACTIONS (2)
  - TREMOR [None]
  - CARDIAC DISORDER [None]
